FAERS Safety Report 13055094 (Version 1)
Quarter: 2016Q4

REPORT INFORMATION
  Report Type: Spontaneous
  Country: US (occurrence: US)
  Receive Date: 20161222
  Receipt Date: 20161222
  Transmission Date: 20170207
  Serious: No
  Sender: FDA-Public Use
  Company Number: US-PFIZER INC-2016593428

PATIENT
  Age: 42 Year
  Sex: Male
  Weight: 77 kg

DRUGS (3)
  1. RAPAMUNE [Suspect]
     Active Substance: SIROLIMUS
     Indication: RENAL TRANSPLANT
     Dosage: 2 MG, 1X/DAY
     Route: 048
     Dates: start: 2009
  2. RAPAMUNE [Suspect]
     Active Substance: SIROLIMUS
     Indication: PANCREAS TRANSPLANT
  3. ASTAGRAF XL [Concomitant]
     Active Substance: TACROLIMUS
     Indication: TRANSPLANT
     Dosage: 1 MG, 1X/DAY
     Dates: start: 2009

REACTIONS (5)
  - Malaise [Recovering/Resolving]
  - Product use issue [Unknown]
  - Sneezing [Recovering/Resolving]
  - Cough [Recovering/Resolving]
  - Sinus disorder [Recovering/Resolving]

NARRATIVE: CASE EVENT DATE: 20161217
